FAERS Safety Report 7534641-X (Version None)
Quarter: 2011Q2

REPORT INFORMATION
  Report Type: 
  Country: None (occurrence: None)
  Receive Date: 20110609
  Receipt Date: 20110317
  Transmission Date: 20111010
  Serious: Yes (Other)
  Sender: FDA-Public Use
  Company Number: PHHY2011DK21866

PATIENT
  Age: 16 Year
  Sex: Female
  Weight: 78.6 kg

DRUGS (2)
  1. RITALIN TAB [Suspect]
     Indication: ATTENTION DEFICIT/HYPERACTIVITY DISORDER
     Dosage: 30 MG + 20 MG DAILY
     Dates: start: 20101129
  2. ZOLOFT [Suspect]
     Indication: DEPRESSION
     Dosage: 150 MG, QD
     Dates: start: 20100211

REACTIONS (4)
  - PERONEAL NERVE INJURY [None]
  - PERONEAL NERVE PALSY [None]
  - SENSORY DISTURBANCE [None]
  - MUSCULAR WEAKNESS [None]
